FAERS Safety Report 16192224 (Version 1)
Quarter: 2019Q2

REPORT INFORMATION
  Report Type: Spontaneous
  Country: US (occurrence: US)
  Receive Date: 20190412
  Receipt Date: 20190412
  Transmission Date: 20190711
  Serious: No
  Sender: FDA-Public Use
  Company Number: US-JNJFOC-20190333501

PATIENT
  Age: 78 Year
  Sex: Female
  Weight: 52.62 kg

DRUGS (1)
  1. TYLENOL EXTRA STRENGTH [Suspect]
     Active Substance: ACETAMINOPHEN
     Indication: PRODUCT USED FOR UNKNOWN INDICATION
     Dosage: HALF PILL OR ONE PILL
     Route: 048

REACTIONS (4)
  - Dry mouth [Not Recovered/Not Resolved]
  - Incorrect dose administered [Unknown]
  - Chapped lips [Not Recovered/Not Resolved]
  - Wrong technique in product usage process [Unknown]
